FAERS Safety Report 16023654 (Version 1)
Quarter: 2019Q1

REPORT INFORMATION
  Report Type: Report from Study
  Country: US (occurrence: US)
  Receive Date: 20190301
  Receipt Date: 20190301
  Transmission Date: 20190418
  Serious: Yes (Other)
  Sender: FDA-Public Use
  Company Number: US-MYLANLABS-2019M1017655

PATIENT
  Sex: Female

DRUGS (1)
  1. CIDOFOVIR. [Suspect]
     Active Substance: CIDOFOVIR
     Indication: RESPIRATORY PAPILLOMA
     Dosage: 5 INJECTIONS OVER A PERIOD OF 7 MONTHS
     Route: 026

REACTIONS (2)
  - Glottis carcinoma [Recovering/Resolving]
  - Neoplasm progression [Recovering/Resolving]
